FAERS Safety Report 16026518 (Version 1)
Quarter: 2019Q1

REPORT INFORMATION
  Report Type: Spontaneous
  Country: US (occurrence: US)
  Receive Date: 20190302
  Receipt Date: 20190302
  Transmission Date: 20190418
  Serious: No
  Sender: FDA-Public Use
  Company Number: US-TARO-2018TAR00645

PATIENT
  Age: 54 Year
  Sex: Female

DRUGS (1)
  1. ENALAPRIL MALEATE TABLETS USP 10 MG [Suspect]
     Active Substance: ENALAPRIL MALEATE

REACTIONS (4)
  - Asthenia [Unknown]
  - Dizziness [Unknown]
  - Unevaluable event [Unknown]
  - Abdominal discomfort [Unknown]
